FAERS Safety Report 6418203-3 (Version None)
Quarter: 2009Q4

REPORT INFORMATION
  Report Type: 
  Country: None (occurrence: None)
  Receive Date: 20091028
  Receipt Date: 20091020
  Transmission Date: 20100525
  Serious: Yes (Other)
  Sender: FDA-Public Use
  Company Number: US-PFIZER INC-2009286507

PATIENT
  Sex: Male
  Weight: 68.038 kg

DRUGS (7)
  1. NEURONTIN [Suspect]
     Indication: SPINAL FRACTURE
     Dosage: 1200 MG, 4X/DAY
     Route: 048
     Dates: start: 20020101, end: 20070101
  2. LYRICA [Suspect]
     Indication: NEUROPATHY PERIPHERAL
     Dosage: FREQUENCY: 4X/DAY,
     Route: 048
  3. LYRICA [Suspect]
     Dosage: 50 MG, 2X/DAY
     Route: 048
     Dates: start: 20070101
  4. LASIX [Concomitant]
     Indication: CARDIAC DISORDER
     Dosage: 75 MG, UNK
     Route: 048
  5. METOPROLOL [Concomitant]
     Dosage: UNK
  6. PLAVIX [Concomitant]
     Indication: CARDIAC DISORDER
     Dosage: UNK
  7. VICODIN [Concomitant]
     Dosage: UNK

REACTIONS (9)
  - ABDOMINAL DISTENSION [None]
  - DECREASED APPETITE [None]
  - DRUG INEFFECTIVE FOR UNAPPROVED INDICATION [None]
  - NEUROPATHY PERIPHERAL [None]
  - PAIN [None]
  - PRURITUS [None]
  - RASH ERYTHEMATOUS [None]
  - SPINAL FUSION SURGERY [None]
  - WEIGHT INCREASED [None]
